FAERS Safety Report 6203613-X (Version None)
Quarter: 2009Q2

REPORT INFORMATION
  Report Type: 
  Country: None (occurrence: None)
  Receive Date: 20090518
  Receipt Date: 20090226
  Transmission Date: 20091009
  Serious: No
  Sender: FDA-Public Use
  Company Number: WAES 0903USA00027

PATIENT
  Age: 54 Year
  Sex: Female

DRUGS (12)
  1. JANUVIA [Suspect]
     Indication: TYPE 2 DIABETES MELLITUS
     Dosage: 50 MG/DAILY/PO
     Route: 048
     Dates: start: 20090127
  2. AZITHROMYCIN [Concomitant]
  3. CHLORHEXIDINE GLUTAMATE [Concomitant]
  4. CLOBETASOL PROPIONATE [Concomitant]
  5. COLCHICINE [Concomitant]
  6. EPOETIN ALFA [Concomitant]
  7. FLUOCINOLONE ACETONIDE [Concomitant]
  8. GLYBURIDE [Concomitant]
  9. INSULIN [Concomitant]
  10. LORATADINE [Concomitant]
  11. TERBINAFINE HCL [Concomitant]
  12. ZOLPIDEM TARTRATE [Concomitant]

REACTIONS (1)
  - DYSURIA [None]
